FAERS Safety Report 7522890-6 (Version None)
Quarter: 2011Q2

REPORT INFORMATION
  Report Type: 
  Country: None (occurrence: None)
  Receive Date: 20110603
  Receipt Date: 20110521
  Transmission Date: 20111010
  Serious: Yes (Other)
  Sender: FDA-Public Use
  Company Number: PHHY2011US34440

PATIENT
  Age: 30 Year
  Sex: Female
  Weight: 56.689 kg

DRUGS (1)
  1. TOBI [Suspect]
     Dosage: 300 MG, BID
     Dates: start: 20110308

REACTIONS (1)
  - PSEUDOMONAS INFECTION [None]
